FAERS Safety Report 10667525 (Version 1)
Quarter: 2014Q4

REPORT INFORMATION
  Report Type: Spontaneous
  Country: US (occurrence: None)
  Receive Date: 20141208
  Receipt Date: 20141208
  Transmission Date: 20150529
  Serious: No
  Sender: FDA-Public Use
  Company Number: 2014TUS006322

PATIENT
  Age: 56 Year
  Sex: Female
  Weight: 70.3 kg

DRUGS (11)
  1. VOLTAREN (DICLOFENAC) [Concomitant]
  2. BRINTELLIX [Suspect]
     Active Substance: VORTIOXETINE HYDROBROMIDE
     Indication: MAJOR DEPRESSION
     Route: 048
     Dates: start: 20140524
  3. PYRIDIUM (PHENAZOPYRIDINE HYDROCHLORIDE) [Concomitant]
  4. SENNA (SENNA ALEXANDRIA) [Concomitant]
     Active Substance: SENNA LEAF
  5. VALIUM [Concomitant]
     Active Substance: DIAZEPAM
  6. KETOPROFEN (KETOPROFEN) [Concomitant]
     Active Substance: KETOPROFEN
  7. PREVACID [Concomitant]
     Active Substance: LANSOPRAZOLE
  8. AMBIEN (ZOLPIDEM TATRATE) [Concomitant]
  9. VESICARE [Concomitant]
     Active Substance: SOLIFENACIN SUCCINATE
  10. MORPHINE [Concomitant]
     Active Substance: MORPHINE
  11. PERCOCET (OXYCODONE HYDROCHLORIDE, PARACETAMOL) [Concomitant]

REACTIONS (1)
  - Muscle spasms [None]

NARRATIVE: CASE EVENT DATE: 20140615
